FAERS Safety Report 17633233 (Version 1)
Quarter: 2020Q2

REPORT INFORMATION
  Report Type: Report from Study
  Country: US (occurrence: US)
  Receive Date: 20200406
  Receipt Date: 20200406
  Transmission Date: 20200713
  Serious: Yes (Other)
  Sender: FDA-Public Use
  Company Number: US-BIOVITRUM-2019US3904

PATIENT
  Sex: Female

DRUGS (1)
  1. KINERET [Suspect]
     Active Substance: ANAKINRA
     Indication: PERICARDIAL DISEASE
     Route: 058

REACTIONS (5)
  - Mood altered [Unknown]
  - Bradycardia [Unknown]
  - Off label use [Not Recovered/Not Resolved]
  - Rash erythematous [Unknown]
  - Blood glucose decreased [Unknown]
